FAERS Safety Report 8531693-5 (Version None)
Quarter: 2012Q3

REPORT INFORMATION
  Report Type: 
  Country: None (occurrence: None)
  Receive Date: 20120723
  Receipt Date: 20120716
  Transmission Date: 20120928
  Serious: Yes (Other)
  Sender: FDA-Public Use
  Company Number: US-AMGEN-USASP2011033266

PATIENT
  Age: 50 Year
  Sex: Female
  Weight: 65.76 kg

DRUGS (29)
  1. ARANESP [Suspect]
     Indication: RENAL FAILURE CHRONIC
     Dosage: 500 MUG, Q3WK
     Route: 058
     Dates: start: 20020101
  2. ARANESP [Suspect]
     Dosage: 500 MUG, Q3WK
     Route: 058
     Dates: start: 20110324
  3. ARANESP [Suspect]
     Dosage: 500 MUG, Q3WK
     Route: 058
     Dates: start: 20110324
  4. ARANESP [Suspect]
     Dosage: 500 MUG, Q3WK
     Route: 058
     Dates: start: 20110324
  5. ARANESP [Suspect]
     Dosage: 300 MUG, Q3WK
     Route: 058
     Dates: start: 20091019, end: 20101209
  6. ARANESP [Suspect]
     Dosage: 400 MUG, Q3WK
     Route: 058
     Dates: start: 20101220, end: 20110324
  7. ARANESP [Suspect]
     Dosage: 500 MUG, Q3WK
     Route: 058
     Dates: start: 20110324
  8. ARANESP [Suspect]
     Dosage: 500 MUG, Q3WK
     Route: 058
     Dates: start: 20110324
  9. ARANESP [Suspect]
     Dosage: 500 MUG, Q3WK
     Route: 058
     Dates: start: 20110324
  10. ARANESP [Suspect]
     Dosage: 500 MUG, Q3WK
     Route: 058
     Dates: start: 20110324
  11. ARANESP [Suspect]
     Dosage: 500 MUG, Q3WK
     Route: 058
     Dates: start: 20110324
  12. ARANESP [Suspect]
     Dosage: 500 MUG, Q3WK
     Route: 058
     Dates: start: 20110324
  13. ARANESP [Suspect]
     Dosage: 500 MUG, Q3WK
     Route: 058
     Dates: start: 20110324
  14. ARANESP [Suspect]
     Dosage: 300 MUG, Q3WK
     Route: 058
     Dates: start: 20091019, end: 20101209
  15. ARANESP [Suspect]
     Dosage: 400 MUG, Q3WK
     Route: 058
     Dates: start: 20101230, end: 20110303
  16. ARANESP [Suspect]
     Dosage: 500 MUG, Q3WK
     Route: 058
     Dates: start: 20110324
  17. ARANESP [Suspect]
     Dosage: 500 MUG, Q3WK
     Route: 058
     Dates: start: 20110324
  18. ARANESP [Suspect]
     Dosage: 500 MUG, Q3WK
     Route: 058
     Dates: start: 20110324
  19. ARANESP [Suspect]
     Dosage: 500 MUG, Q3WK
     Route: 058
     Dates: start: 20110324
  20. PREDNISONE [Concomitant]
     Dosage: UNK
     Dates: end: 20060101
  21. ARANESP [Suspect]
     Dosage: 300 MUG, Q3WK
     Route: 058
     Dates: start: 20091019, end: 20101209
  22. ARANESP [Suspect]
     Dosage: 300 MUG, Q3WK
     Route: 058
     Dates: start: 20091019, end: 20101219
  23. ARANESP [Suspect]
     Dosage: 300 MUG, Q3WK
     Route: 058
     Dates: start: 20091019, end: 20101209
  24. ARANESP [Suspect]
     Dosage: 400 MUG, Q3WK
     Route: 058
     Dates: start: 20101230, end: 20110303
  25. ARANESP [Suspect]
     Dosage: 500 MUG, Q3WK
     Route: 058
     Dates: start: 20110324
  26. ARANESP [Suspect]
     Dosage: 500 MUG, Q3WK
     Route: 058
     Dates: start: 20110324
  27. ARANESP [Suspect]
     Dosage: 500 MUG, Q3WK
     Route: 058
     Dates: start: 20110324
  28. ARANESP [Suspect]
     Dosage: 300 MUG, Q3WK
     Route: 058
     Dates: start: 20091019, end: 20101209
  29. ARANESP [Suspect]
     Dosage: 500 MUG, Q3WK
     Route: 058
     Dates: start: 20110324

REACTIONS (10)
  - DRY EYE [None]
  - OCULAR HYPERAEMIA [None]
  - DRY MOUTH [None]
  - BONE MARROW FAILURE [None]
  - IDIOPATHIC THROMBOCYTOPENIC PURPURA [None]
  - ANAEMIA [None]
  - THROMBOPHLEBITIS SUPERFICIAL [None]
  - DEEP VEIN THROMBOSIS [None]
  - CALCIPHYLAXIS [None]
  - APLASIA PURE RED CELL [None]
